FAERS Safety Report 13963544 (Version 1)
Quarter: 2017Q3

REPORT INFORMATION
  Report Type: Spontaneous
  Country: US (occurrence: US)
  Receive Date: 20170913
  Receipt Date: 20170913
  Transmission Date: 20171128
  Serious: No
  Sender: FDA-Public Use
  Company Number: US-JNJFOC-20170105994

PATIENT
  Sex: Male

DRUGS (3)
  1. GABAPENTIN. [Concomitant]
     Active Substance: GABAPENTIN
     Indication: NECK PAIN
     Route: 065
     Dates: start: 20160710
  2. MOBIC [Concomitant]
     Active Substance: MELOXICAM
     Indication: NECK PAIN
     Route: 065
     Dates: start: 20160710
  3. TRAMADOL HYDROCHLORIDE. [Suspect]
     Active Substance: TRAMADOL HYDROCHLORIDE
     Indication: NECK PAIN
     Route: 065
     Dates: start: 20160710

REACTIONS (1)
  - Somnolence [Unknown]
